FAERS Safety Report 18236464 (Version 3)
Quarter: 2020Q4

REPORT INFORMATION
  Report Type: Spontaneous
  Country: DE (occurrence: DE)
  Receive Date: 20200907
  Receipt Date: 20201006
  Transmission Date: 20210113
  Serious: Yes (Other)
  Sender: FDA-Public Use
  Company Number: DE-AUROBINDO-AUR-APL-2020-046605

PATIENT
  Sex: Male
  Weight: 102 kg

DRUGS (3)
  1. AMIODARONE [Suspect]
     Active Substance: AMIODARONE
     Indication: TACHYARRHYTHMIA
     Dosage: 200 DOSAGE FORM, ONCE A DAY
     Route: 048
  2. BISOPROLOL [Suspect]
     Active Substance: BISOPROLOL
     Indication: ATRIAL FIBRILLATION
     Dosage: 5 DOSAGE FORM, ONCE A DAY
     Route: 048
  3. ELIQUIS [Interacting]
     Active Substance: APIXABAN
     Indication: CEREBROVASCULAR ACCIDENT PROPHYLAXIS
     Dosage: 5 MILLIGRAM, TWO TIMES A DAY (10 MILLIGRAM, ONCE A DAY)
     Route: 048
     Dates: start: 20200820

REACTIONS (6)
  - Pulmonary venous thrombosis [Unknown]
  - Drug ineffective [Unknown]
  - Renal impairment [Unknown]
  - Drug interaction [Unknown]
  - Aortic thrombosis [Recovered/Resolved]
  - Atrial thrombosis [Recovered/Resolved]
